FAERS Safety Report 21659050 (Version 2)
Quarter: 2023Q2

REPORT INFORMATION
  Report Type: Spontaneous
  Country: US (occurrence: US)
  Receive Date: 20221129
  Receipt Date: 20230421
  Transmission Date: 20230722
  Serious: No
  Sender: FDA-Public Use
  Company Number: US-009507513-2211USA007994

PATIENT
  Age: 72 Year
  Sex: Male
  Weight: 86.168 kg

DRUGS (3)
  1. BELSOMRA [Suspect]
     Active Substance: SUVOREXANT
     Indication: Insomnia
     Dosage: 20 MG./1 TABLET AT BEDTIME (FORMULATION: 20 MILLIGRAM/30 COMPRESSED TABLET (CT) (3X10UU BLISTER CARD
     Route: 048
     Dates: start: 20221120, end: 20221129
  2. MELATONIN [Suspect]
     Active Substance: MELATONIN
  3. GABAPENTIN [Concomitant]
     Active Substance: GABAPENTIN

REACTIONS (5)
  - Insomnia [Recovered/Resolved]
  - Myalgia [Recovered/Resolved]
  - Malaise [Recovered/Resolved]
  - Anxiety [Recovered/Resolved]
  - Drug ineffective [Unknown]

NARRATIVE: CASE EVENT DATE: 20221120
